FAERS Safety Report 16105044 (Version 1)
Quarter: 2019Q2

REPORT INFORMATION
  Report Type: Spontaneous
  Country: US (occurrence: US)
  Receive Date: 20190321
  Receipt Date: 20190321
  Transmission Date: 20190711
  Serious: Yes (Death)
  Sender: FDA-Public Use
  Company Number: None

PATIENT
  Age: 80 Year
  Sex: Female
  Weight: 72 kg

DRUGS (2)
  1. APIXABAN [Suspect]
     Active Substance: APIXABAN
     Indication: ATRIAL FIBRILLATION
  2. CLOPIDOGREL 75MG PO DAILY [Concomitant]
     Dates: start: 20180101, end: 20190319

REACTIONS (2)
  - Haemorrhage intracranial [None]
  - Unresponsive to stimuli [None]

NARRATIVE: CASE EVENT DATE: 20190319
